FAERS Safety Report 4435154-4 (Version None)
Quarter: 2004Q3

REPORT INFORMATION
  Report Type: 
  Country: None (occurrence: None)
  Receive Date: 20040827
  Receipt Date: 20040714
  Transmission Date: 20050211
  Serious: Yes (Other)
  Sender: FDA-Public Use
  Company Number: US-MERCK-0407USA01264

PATIENT
  Age: 61 Year
  Sex: Female
  Weight: 65 kg

DRUGS (7)
  1. ISORDIL [Concomitant]
     Route: 065
  2. PRINIVIL [Concomitant]
     Route: 048
  3. LOPRESSOR [Concomitant]
     Route: 065
  4. ZOCOR [Suspect]
     Indication: BLOOD CHOLESTEROL INCREASED
     Route: 048
     Dates: start: 19950101, end: 20030101
  5. ZOCOR [Suspect]
     Route: 048
     Dates: start: 20030101
  6. ZOCOR [Suspect]
     Indication: HYPERLIPIDAEMIA
     Route: 048
     Dates: start: 19950101, end: 20030101
  7. ZOCOR [Suspect]
     Route: 048
     Dates: start: 20030101

REACTIONS (5)
  - ALANINE AMINOTRANSFERASE INCREASED [None]
  - ASPARTATE AMINOTRANSFERASE INCREASED [None]
  - BLOOD CHOLESTEROL INCREASED [None]
  - CORONARY ARTERY DISEASE [None]
  - LIVER FUNCTION TEST ABNORMAL [None]
